FAERS Safety Report 19661189 (Version 1)
Quarter: 2021Q3

REPORT INFORMATION
  Report Type: Spontaneous
  Country: US (occurrence: US)
  Receive Date: 20210805
  Receipt Date: 20210805
  Transmission Date: 20211014
  Serious: No
  Sender: FDA-Public Use
  Company Number: US-AMGEN-USASP2021117162

PATIENT
  Age: 58 Year
  Sex: Male

DRUGS (2)
  1. COVID?19 VACCINE [Concomitant]
  2. REPATHA [Suspect]
     Active Substance: EVOLOCUMAB
     Indication: BLOOD CHOLESTEROL INCREASED
     Dosage: 140 MILLIGRAM, Q2WK
     Route: 058
     Dates: start: 20210504

REACTIONS (6)
  - Hypoaesthesia [Unknown]
  - Peripheral swelling [Recovering/Resolving]
  - Arthropod bite [Not Recovered/Not Resolved]
  - Skin discolouration [Unknown]
  - Rash erythematous [Unknown]
  - Paraesthesia [Unknown]

NARRATIVE: CASE EVENT DATE: 2021
